FAERS Safety Report 14859855 (Version 1)
Quarter: 2018Q2

REPORT INFORMATION
  Report Type: Spontaneous
  Country: FR (occurrence: FR)
  Receive Date: 20180508
  Receipt Date: 20180508
  Transmission Date: 20180711
  Serious: Yes (Other)
  Sender: FDA-Public Use
  Company Number: FR-MERCK KGAA-2047390

PATIENT
  Age: 47 Year
  Sex: Female

DRUGS (1)
  1. NOVOTHYROX [Suspect]
     Active Substance: LEVOTHYROXINE SODIUM
     Indication: AUTOIMMUNE THYROIDITIS

REACTIONS (14)
  - Hand prosthesis user [None]
  - Vertigo [None]
  - Crying [None]
  - Myalgia [None]
  - Muscle spasms [None]
  - Arthralgia [None]
  - Fatigue [None]
  - Irritability [None]
  - Diarrhoea [None]
  - Headache [None]
  - Asthenia [None]
  - Blood thyroid stimulating hormone increased [None]
  - Self esteem decreased [None]
  - Middle insomnia [None]

NARRATIVE: CASE EVENT DATE: 201708
